FAERS Safety Report 8974453 (Version 6)
Quarter: 2013Q1

REPORT INFORMATION
  Report Type: Report from Study
  Country: US (occurrence: US)
  Receive Date: 20121220
  Receipt Date: 20130115
  Transmission Date: 20140127
  Serious: No
  Sender: FDA-Public Use
  Company Number: US-VERTEX PHARMACEUTICALS INC.-2012-026373

PATIENT
  Age: 67 None
  Sex: Male
  Weight: 100 kg

DRUGS (5)
  1. VX-950 (TELAPREVIR) [Suspect]
     Indication: HEPATITIS C
     Dosage: 1125 MG, BID
     Route: 048
     Dates: start: 20121203
  2. PEGASYS [Suspect]
     Indication: HEPATITIS C
     Dosage: 180 MG, WEEKLY
     Route: 058
     Dates: start: 20121202
  3. RIBAPAK [Suspect]
     Indication: HEPATITIS C
     Dosage: 600 MG, BID
     Route: 048
     Dates: start: 20121203
  4. RIBAPAK [Suspect]
     Dosage: 800 MG, QD
  5. LISINOPRIL [Concomitant]

REACTIONS (9)
  - Dyspnoea exertional [Not Recovered/Not Resolved]
  - Feeling abnormal [Not Recovered/Not Resolved]
  - Arthralgia [Unknown]
  - Pain in extremity [Unknown]
  - Asthenia [Not Recovered/Not Resolved]
  - Fatigue [Not Recovered/Not Resolved]
  - Rash maculo-papular [Not Recovered/Not Resolved]
  - Anaemia [Unknown]
  - Pruritus [Unknown]
